FAERS Safety Report 7298217-4 (Version None)
Quarter: 2011Q1

REPORT INFORMATION
  Report Type: 
  Country: None (occurrence: None)
  Receive Date: 20110214
  Receipt Date: 20110214
  Transmission Date: 20110831
  Serious: Yes (Life-Threatening, Hospitalization)
  Sender: FDA-Public Use
  Company Number: None

PATIENT
  Age: 81 Year
  Sex: Male
  Weight: 60.3284 kg

DRUGS (1)
  1. TRACLEER [Suspect]
     Indication: PULMONARY HYPERTENSION
     Dosage: 62.5 MG TWICE DAILY PO
     Route: 048
     Dates: start: 20110110, end: 20110114

REACTIONS (5)
  - HEAD INJURY [None]
  - SYNCOPE [None]
  - RENAL FAILURE ACUTE [None]
  - APPARENT DEATH [None]
  - SCAR [None]
